FAERS Safety Report 5726050-0 (Version None)
Quarter: 2008Q2

REPORT INFORMATION
  Report Type: 
  Country: None (occurrence: None)
  Receive Date: 20080502
  Receipt Date: 20080422
  Transmission Date: 20081010
  Serious: Yes (Hospitalization)
  Sender: FDA-Public Use
  Company Number: US-AMGEN-STX273163

PATIENT
  Sex: Female
  Weight: 83.1 kg

DRUGS (1)
  1. ENBREL [Suspect]
     Indication: PSORIASIS
     Route: 058
     Dates: start: 20060522, end: 20080208

REACTIONS (2)
  - ANKLE FRACTURE [None]
  - VAGINITIS BACTERIAL [None]
